FAERS Safety Report 9147222 (Version 3)
Quarter: 2013Q2

REPORT INFORMATION
  Report Type: Spontaneous
  Country: PT (occurrence: PT)
  Receive Date: 20130307
  Receipt Date: 20130412
  Transmission Date: 20140414
  Serious: Yes (Life-Threatening, Other)
  Sender: FDA-Public Use
  Company Number: PT-ROCHE-1199054

PATIENT
  Age: 68 Year
  Sex: Female
  Weight: 68 kg

DRUGS (4)
  1. AVASTIN [Suspect]
     Indication: COLORECTAL CANCER
     Dosage: CONCENTRATE FOR SOLUTION FOR INFUSION, 25 MG/ML
     Route: 042
     Dates: start: 20121016, end: 20130125
  2. LEUCOVORIN [Concomitant]
     Indication: COLORECTAL CANCER
     Route: 042
     Dates: start: 20121016, end: 20130125
  3. FLUOROURACIL [Concomitant]
     Indication: COLORECTAL CANCER
     Route: 042
     Dates: start: 20121016, end: 20130125
  4. IRINOTECAN [Concomitant]
     Indication: COLORECTAL CANCER
     Route: 042
     Dates: start: 20121016, end: 20130125

REACTIONS (6)
  - Gastrointestinal haemorrhage [Recovering/Resolving]
  - Female genital tract fistula [Recovering/Resolving]
  - Intestinal perforation [Recovering/Resolving]
  - Hypovolaemic shock [Recovering/Resolving]
  - Infusion related reaction [Recovering/Resolving]
  - Haemorrhage [Recovering/Resolving]
